FAERS Safety Report 6645498-3 (Version None)
Quarter: 2010Q1

REPORT INFORMATION
  Report Type: 
  Country: None (occurrence: None)
  Receive Date: 20100323
  Receipt Date: 20100315
  Transmission Date: 20100710
  Serious: Yes (Hospitalization)
  Sender: FDA-Public Use
  Company Number: 2008BI000926

PATIENT
  Age: 62 Year
  Sex: Female

DRUGS (4)
  1. AVONEX [Suspect]
     Indication: MULTIPLE SCLEROSIS
     Route: 030
     Dates: start: 19970101, end: 20050531
  2. AVONEX [Suspect]
     Route: 030
     Dates: start: 20050601, end: 20050930
  3. AVONEX [Suspect]
     Route: 030
     Dates: start: 20051001
  4. FOSAMAX [Concomitant]

REACTIONS (3)
  - FALL [None]
  - FEMUR FRACTURE [None]
  - HIP FRACTURE [None]
